FAERS Safety Report 4944353-4 (Version None)
Quarter: 2006Q1

REPORT INFORMATION
  Report Type: 
  Country: None (occurrence: None)
  Receive Date: 20060315
  Receipt Date: 20051004
  Transmission Date: 20060701
  Serious: Yes (Death, Hospitalization, Other)
  Sender: FDA-Public Use
  Company Number: US-MERCK-0510USA03909

PATIENT
  Age: 75 Year
  Sex: Female
  Weight: 59 kg

DRUGS (4)
  1. VIOXX [Suspect]
     Indication: ARTHRITIS
     Route: 048
     Dates: start: 20010824, end: 20040316
  2. VIOXX [Suspect]
     Indication: PAIN MANAGEMENT
     Route: 048
     Dates: start: 20010824, end: 20040316
  3. TYLENOL (CAPLET) [Concomitant]
     Route: 065
  4. NORVASC [Concomitant]
     Route: 065
     Dates: start: 20010614, end: 20040118

REACTIONS (18)
  - ATROPHY [None]
  - BACK PAIN [None]
  - CARDIO-RESPIRATORY ARREST [None]
  - CEREBROVASCULAR ACCIDENT [None]
  - CHEST INJURY [None]
  - CLAVICLE FRACTURE [None]
  - CONFUSIONAL STATE [None]
  - CONTUSION [None]
  - DEATH [None]
  - EXCORIATION [None]
  - FALL [None]
  - ISCHAEMIC STROKE [None]
  - JOINT INJURY [None]
  - MENTAL STATUS CHANGES [None]
  - MYOCARDIAL INFARCTION [None]
  - POLYP COLORECTAL [None]
  - THERMAL BURN [None]
  - URINARY TRACT INFECTION [None]
